FAERS Safety Report 5245371-1 (Version None)
Quarter: 2007Q1

REPORT INFORMATION
  Report Type: 
  Country: None (occurrence: None)
  Receive Date: 20070223
  Receipt Date: 20070216
  Transmission Date: 20070707
  Serious: Yes (Other)
  Sender: FDA-Public Use
  Company Number: FR-SANOFI-SYNTHELABO-A01200605176

PATIENT
  Age: 30 Year
  Sex: Female

DRUGS (2)
  1. PLAVIX [Suspect]
     Indication: TAKAYASU'S ARTERITIS
     Route: 048
  2. PLAVIX [Suspect]
     Route: 048

REACTIONS (3)
  - ABORTION INDUCED [None]
  - DRUG EXPOSURE DURING PREGNANCY [None]
  - PRESCRIBED OVERDOSE [None]
